FAERS Safety Report 12261526 (Version 1)
Quarter: 2016Q2

REPORT INFORMATION
  Report Type: Spontaneous
  Country: US (occurrence: US)
  Receive Date: 20160412
  Receipt Date: 20160412
  Transmission Date: 20160815
  Serious: Yes (Other)
  Sender: FDA-Public Use
  Company Number: US-PFM-US-2016-1198

PATIENT
  Sex: Female

DRUGS (4)
  1. PROPRANOLOL INN [Suspect]
     Active Substance: PROPRANOLOL HYDROCHLORIDE
     Dosage: 1.6 MG/KG, TID (3/DAY)
     Route: 048
  2. PROPRANOLOL INN [Suspect]
     Active Substance: PROPRANOLOL HYDROCHLORIDE
     Dosage: 2 MG/KG, TID (3/DAY)
     Route: 048
  3. PROPRANOLOL INN [Suspect]
     Active Substance: PROPRANOLOL HYDROCHLORIDE
     Dosage: 0.4 MG/KG, TID (3/DAY)
     Route: 048
  4. PROPRANOLOL INN [Suspect]
     Active Substance: PROPRANOLOL HYDROCHLORIDE
     Indication: INFANTILE HAEMANGIOMA
     Dosage: 0.2 MG/KG, TID (3/DAY)
     Route: 048

REACTIONS (6)
  - Pain [None]
  - Tongue ulceration [None]
  - Drug ineffective [Recovered/Resolved]
  - Upper airway obstruction [Recovered/Resolved]
  - Mouth ulceration [Recovered/Resolved]
  - Lip ulceration [None]
